FAERS Safety Report 14472323 (Version 1)
Quarter: 2018Q1

REPORT INFORMATION
  Report Type: Spontaneous
  Country: US (occurrence: US)
  Receive Date: 20180131
  Receipt Date: 20180131
  Transmission Date: 20180509
  Serious: No
  Sender: FDA-Public Use
  Company Number: US-ELI_LILLY_AND_COMPANY-US201801013477

PATIENT
  Sex: Male

DRUGS (2)
  1. HUMULIN N [Suspect]
     Active Substance: INSULIN HUMAN
     Indication: PRODUCT USED FOR UNKNOWN INDICATION
     Dosage: 15 U, DAILY(NIGHT)
     Route: 065
     Dates: start: 20180123
  2. HUMULIN N [Suspect]
     Active Substance: INSULIN HUMAN
     Dosage: 15 U, BID (MORNING AND NIGHT)
     Route: 065

REACTIONS (2)
  - Product storage error [Unknown]
  - Blood glucose increased [Unknown]
